FAERS Safety Report 6039776-9 (Version None)
Quarter: 2009Q1

REPORT INFORMATION
  Report Type: 
  Country: None (occurrence: None)
  Receive Date: 20090116
  Receipt Date: 20090109
  Transmission Date: 20090719
  Serious: Yes (Hospitalization, Other)
  Sender: FDA-Public Use
  Company Number: BE-AMGEN-UK321127

PATIENT
  Sex: Male
  Weight: 80 kg

DRUGS (1)
  1. NEUPOGEN [Suspect]
     Indication: BLOOD STEM CELL HARVEST
     Route: 058
     Dates: start: 20081123, end: 20081126

REACTIONS (7)
  - BACK PAIN [None]
  - BONE PAIN [None]
  - DIFFUSE ALVEOLAR DAMAGE [None]
  - HAEMOPTYSIS [None]
  - LUNG INFILTRATION [None]
  - LUNG INJURY [None]
  - PULMONARY ALVEOLAR HAEMORRHAGE [None]
